FAERS Safety Report 18923354 (Version 4)
Quarter: 2022Q1

REPORT INFORMATION
  Report Type: Spontaneous
  Country: CO (occurrence: CO)
  Receive Date: 20210222
  Receipt Date: 20220117
  Transmission Date: 20220424
  Serious: Yes (Other)
  Sender: FDA-Public Use
  Company Number: CO-AMGEN-COLSP2021025507

PATIENT
  Age: 66 Year
  Sex: Male

DRUGS (3)
  1. NEULASTA [Suspect]
     Active Substance: PEGFILGRASTIM
     Indication: Prophylaxis
     Dosage: 6000 MICROGRAM
     Route: 065
     Dates: start: 20201130
  2. NEULASTA [Suspect]
     Active Substance: PEGFILGRASTIM
     Dosage: 6000 MICROGRAM
     Route: 065
     Dates: start: 20201130
  3. DOCETAXEL ANHYDROUS [Concomitant]
     Active Substance: DOCETAXEL ANHYDROUS
     Indication: Prostate cancer
     Dosage: 135 MILLIGRAM, Q3WK

REACTIONS (3)
  - Neutropenia [Recovered/Resolved]
  - Device issue [Unknown]
  - Wrong technique in product usage process [Unknown]

NARRATIVE: CASE EVENT DATE: 20210202
